FAERS Safety Report 4953869-6 (Version None)
Quarter: 2006Q1

REPORT INFORMATION
  Report Type: 
  Country: None (occurrence: None)
  Receive Date: 20060324
  Receipt Date: 20060324
  Transmission Date: 20060701
  Serious: Yes (Hospitalization)
  Sender: FDA-Public Use
  Company Number: None

PATIENT
  Age: 58 Year
  Sex: Male
  Weight: 81 kg

DRUGS (10)
  1. FINASTERIDE [Suspect]
     Indication: BENIGN PROSTATIC HYPERPLASIA
     Dosage: 5 MG QD
  2. ASPIRIN [Concomitant]
  3. DOXAZOSIN [Concomitant]
  4. FLUNISOLIDE [Concomitant]
  5. FLUOXETINE HCL [Concomitant]
  6. FOLIC ACID [Concomitant]
  7. FISH OIL [Concomitant]
  8. OMEPRAZOLE [Concomitant]
  9. PSEUDOEPHEDRINE HCL [Concomitant]
  10. RANITIDINE [Concomitant]

REACTIONS (5)
  - FEELING ABNORMAL [None]
  - HYPOAESTHESIA [None]
  - PARAESTHESIA [None]
  - PRURITUS [None]
  - RASH [None]
